FAERS Safety Report 7927149-0 (Version None)
Quarter: 2011Q4

REPORT INFORMATION
  Report Type: 
  Country: None (occurrence: None)
  Receive Date: 20111118
  Receipt Date: 20111109
  Transmission Date: 20120403
  Serious: Yes (Hospitalization, Other)
  Sender: FDA-Public Use
  Company Number: US-JNJFOC-20110902805

PATIENT
  Age: 13 Year
  Sex: Female

DRUGS (4)
  1. PREDNISONE TAB [Concomitant]
     Indication: CROHN'S DISEASE
     Route: 065
  2. REMICADE [Suspect]
     Dosage: DOSE:200MG
     Route: 042
     Dates: start: 20110801
  3. MERCAPTOPURINE [Concomitant]
     Indication: CROHN'S DISEASE
     Route: 065
  4. REMICADE [Suspect]
     Indication: CROHN'S DISEASE
     Route: 042
     Dates: start: 20110801

REACTIONS (2)
  - SERUM SICKNESS [None]
  - ALOPECIA [None]
